FAERS Safety Report 4764309-4 (Version None)
Quarter: 2005Q3

REPORT INFORMATION
  Report Type: 
  Country: None (occurrence: None)
  Receive Date: 20050906
  Receipt Date: 20050823
  Transmission Date: 20060218
  Serious: Yes (Hospitalization, Other)
  Sender: FDA-Public Use
  Company Number: USA050598264

PATIENT
  Age: 53 Year
  Sex: Female

DRUGS (2)
  1. FORTEO [Suspect]
     Indication: OSTEOPOROSIS
     Dates: start: 20040101
  2. PREDNISONE [Concomitant]

REACTIONS (3)
  - ASEPTIC NECROSIS BONE [None]
  - CONDITION AGGRAVATED [None]
  - MECHANICAL COMPLICATION OF IMPLANT [None]
